FAERS Safety Report 9984354 (Version 1)
Quarter: 2014Q1

REPORT INFORMATION
  Report Type: Report from Study
  Country: US (occurrence: US)
  Receive Date: 20140307
  Receipt Date: 20140307
  Transmission Date: 20141002
  Serious: No
  Sender: FDA-Public Use
  Company Number: US-ABBVIE-13P-163-1182856-00

PATIENT
  Age: 56 Year
  Sex: Female

DRUGS (10)
  1. HUMIRA [Suspect]
     Indication: PSORIATIC ARTHROPATHY
     Dates: start: 20131217
  2. METHOTREXATE [Concomitant]
     Indication: PSORIATIC ARTHROPATHY
     Dosage: 10 WEEKLY
  3. FOLIC ACID [Concomitant]
     Indication: PRODUCT USED FOR UNKNOWN INDICATION
  4. FLUOXETINE [Concomitant]
     Indication: FIBROMYALGIA
  5. BENICAR [Concomitant]
     Indication: HYPERTENSION
  6. OMEPRAZOLE [Concomitant]
     Indication: GASTRIC DISORDER
  7. HYDROCODONE [Concomitant]
     Indication: PAIN
     Dosage: EVERY SIX HOURS
  8. ADVIL [Concomitant]
     Indication: PAIN
  9. MILK THISTLE [Concomitant]
     Indication: PRODUCT USED FOR UNKNOWN INDICATION
  10. PROBIOTIC [Concomitant]
     Indication: PRODUCT USED FOR UNKNOWN INDICATION

REACTIONS (16)
  - Fatigue [Not Recovered/Not Resolved]
  - Lethargy [Not Recovered/Not Resolved]
  - Injection site papule [Not Recovered/Not Resolved]
  - Injection site papule [Not Recovered/Not Resolved]
  - Skin discolouration [Not Recovered/Not Resolved]
  - Scar [Not Recovered/Not Resolved]
  - Abdominal discomfort [Not Recovered/Not Resolved]
  - Injection site erythema [Not Recovered/Not Resolved]
  - Injection site pruritus [Not Recovered/Not Resolved]
  - Injection site swelling [Not Recovered/Not Resolved]
  - Nausea [Recovered/Resolved]
  - Injection site swelling [Not Recovered/Not Resolved]
  - Nausea [Recovered/Resolved]
  - Injection site pain [Not Recovered/Not Resolved]
  - Injection site erythema [Not Recovered/Not Resolved]
  - Injection site pruritus [Not Recovered/Not Resolved]
